FAERS Safety Report 4449109-7 (Version None)
Quarter: 2004Q3

REPORT INFORMATION
  Report Type: 
  Country: None (occurrence: None)
  Receive Date: 20040910
  Receipt Date: 20040824
  Transmission Date: 20050211
  Serious: Yes (Death)
  Sender: FDA-Public Use
  Company Number: 2004230601PL

PATIENT
  Age: 32 Year
  Sex: Female

DRUGS (3)
  1. FARMORUBICIN PFS(EPIRUBICIN HYDROCHLORIDE) SOLUTION, STERILE [Suspect]
     Indication: ACUTE LYMPHOCYTIC LEUKAEMIA
  2. VINCRISTINE SULFATE [Suspect]
     Indication: ACUTE LYMPHOCYTIC LEUKAEMIA
  3. PREDNISONE [Concomitant]

REACTIONS (14)
  - ABDOMINAL NEOPLASM [None]
  - ASCITES [None]
  - BONE MARROW LEUKAEMIC CELL INFILTRATION [None]
  - ENTEROBACTER INFECTION [None]
  - GASTROINTESTINAL HAEMORRHAGE [None]
  - GENERAL PHYSICAL HEALTH DETERIORATION [None]
  - HAEMOGLOBIN DECREASED [None]
  - HYDROTHORAX [None]
  - LEUKAEMIA RECURRENT [None]
  - MULTI-ORGAN FAILURE [None]
  - NEUTROPENIC COLITIS [None]
  - PLATELET COUNT DECREASED [None]
  - PNEUMONIA [None]
  - STAPHYLOCOCCAL SEPSIS [None]
